FAERS Safety Report 6623502-6 (Version None)
Quarter: 2010Q1

REPORT INFORMATION
  Report Type: 
  Country: None (occurrence: None)
  Receive Date: 20100310
  Receipt Date: 20100301
  Transmission Date: 20100710
  Serious: Yes (Hospitalization)
  Sender: FDA-Public Use
  Company Number: NL-MEDIMMUNE-MEDI-0010574

PATIENT
  Sex: Male

DRUGS (2)
  1. SYNAGIS [Suspect]
     Dates: start: 20091127, end: 20100122
  2. SYNAGIS [Suspect]
     Dates: start: 20100217, end: 20100217

REACTIONS (4)
  - COUGH [None]
  - CYANOSIS [None]
  - HYPOPHAGIA [None]
  - RESPIRATORY TRACT INFECTION [None]
